FAERS Safety Report 12193912 (Version 1)
Quarter: 2016Q1

REPORT INFORMATION
  Report Type: Spontaneous
  Country: US (occurrence: US)
  Receive Date: 20160321
  Receipt Date: 20160321
  Transmission Date: 20160526
  Serious: No
  Sender: FDA-Public Use
  Company Number: US-TEVA-549334USA

PATIENT
  Sex: Male

DRUGS (1)
  1. QUETIAPINE FUMARATE. [Suspect]
     Active Substance: QUETIAPINE FUMARATE
     Indication: DEPRESSION
     Dates: start: 20150313

REACTIONS (5)
  - Depressed mood [Unknown]
  - Drug ineffective [Unknown]
  - Depression [Unknown]
  - Psychiatric symptom [Unknown]
  - Decreased activity [Unknown]
